FAERS Safety Report 16223281 (Version 7)
Quarter: 2020Q3

REPORT INFORMATION
  Report Type: Spontaneous
  Country: US (occurrence: US)
  Receive Date: 20190422
  Receipt Date: 20200716
  Transmission Date: 20201102
  Serious: No
  Sender: FDA-Public Use
  Company Number: US-PFIZER INC-2019130011

PATIENT
  Age: 53 Year
  Sex: Female

DRUGS (1)
  1. IBRANCE [Suspect]
     Active Substance: PALBOCICLIB
     Indication: BREAST CANCER FEMALE
     Dosage: 125 MG, DAILY
     Dates: start: 20171222

REACTIONS (8)
  - Pain in extremity [Unknown]
  - Bone pain [Unknown]
  - Arthropathy [Unknown]
  - Back pain [Unknown]
  - Toothache [Unknown]
  - Feeling abnormal [Unknown]
  - Bone lesion [Unknown]
  - Dyspepsia [Unknown]
